FAERS Safety Report 8198126-2 (Version None)
Quarter: 2012Q1

REPORT INFORMATION
  Report Type: 
  Country: None (occurrence: None)
  Receive Date: 20120309
  Receipt Date: 20120224
  Transmission Date: 20120608
  Serious: Yes (Hospitalization, Other)
  Sender: FDA-Public Use
  Company Number: TR-WATSON-2012-01447

PATIENT
  Age: 5 Year
  Sex: Male
  Weight: 56 kg

DRUGS (1)
  1. VALPROATE SODIUM [Suspect]
     Indication: FEBRILE CONVULSION
     Dosage: 60 MG/KG, DAILY
     Route: 065

REACTIONS (3)
  - DRUG LEVEL INCREASED [None]
  - HEPATITIS A [None]
  - HEPATOTOXICITY [None]
